FAERS Safety Report 14927746 (Version 1)
Quarter: 2018Q2

REPORT INFORMATION
  Report Type: Spontaneous
  Country: US (occurrence: US)
  Receive Date: 20180523
  Receipt Date: 20180523
  Transmission Date: 20180711
  Serious: Yes (Death, Hospitalization, Other)
  Sender: FDA-Public Use
  Company Number: US-BAYER-2018-094233

PATIENT
  Age: 50 Year
  Sex: Male
  Weight: 68.98 kg

DRUGS (11)
  1. PROTIONAMIDE [Suspect]
     Active Substance: PROTIONAMIDE
     Indication: PRODUCT USED FOR UNKNOWN INDICATION
     Dosage: 750 MG, QD
     Route: 048
     Dates: start: 20171129
  2. CLOFAZIMINE [Suspect]
     Active Substance: CLOFAZIMINE
     Indication: PRODUCT USED FOR UNKNOWN INDICATION
     Dosage: 100 MG, QD
     Route: 048
     Dates: start: 20171129
  3. METFORMIN [Concomitant]
     Active Substance: METFORMIN HYDROCHLORIDE
  4. CYCLOSERINE. [Suspect]
     Active Substance: CYCLOSERINE
     Indication: PRODUCT USED FOR UNKNOWN INDICATION
     Dosage: UNK
     Dates: start: 20171129, end: 20171208
  5. CAPTOPRIL. [Concomitant]
     Active Substance: CAPTOPRIL
     Indication: HYPERTENSION
  6. AVELOX [Suspect]
     Active Substance: MOXIFLOXACIN HYDROCHLORIDE
     Dosage: 400 MG, QD
     Route: 048
     Dates: start: 20171129
  7. 3TC [Concomitant]
     Active Substance: LAMIVUDINE
     Dosage: UNK
  8. ABACAVIR. [Concomitant]
     Active Substance: ABACAVIR
     Dosage: UNK
  9. DAONIL [Concomitant]
     Active Substance: GLYBURIDE
     Indication: DIABETES MELLITUS
  10. NEVIRAPINE. [Concomitant]
     Active Substance: NEVIRAPINE
     Indication: HIV INFECTION
  11. PYRAZINAMIDE. [Suspect]
     Active Substance: PYRAZINAMIDE
     Indication: PRODUCT USED FOR UNKNOWN INDICATION
     Dosage: 1800 MG, QD
     Route: 048
     Dates: start: 20171129

REACTIONS (9)
  - Fall [None]
  - Spinal cord compression [Recovering/Resolving]
  - Urethral stenosis [Recovering/Resolving]
  - Psoas abscess [Recovering/Resolving]
  - Muscular weakness [Recovering/Resolving]
  - Pulmonary embolism [Fatal]
  - Extradural abscess [None]
  - Cough [Fatal]
  - Urinary tract obstruction [Recovering/Resolving]
